FAERS Safety Report 19880781 (Version 3)
Quarter: 2021Q4

REPORT INFORMATION
  Report Type: Spontaneous
  Country: US (occurrence: US)
  Receive Date: 20210925
  Receipt Date: 20211130
  Transmission Date: 20220303
  Serious: Yes (Other)
  Sender: FDA-Public Use
  Company Number: US-NOVARTISPH-NVSC2021US214350

PATIENT
  Sex: Female

DRUGS (4)
  1. ENTRESTO [Suspect]
     Active Substance: SACUBITRIL\VALSARTAN
     Indication: Product used for unknown indication
     Dosage: 50 MG, BID (LAST DOSE)
     Route: 065
  2. ENTRESTO [Suspect]
     Active Substance: SACUBITRIL\VALSARTAN
     Dosage: UNK, QD
     Route: 065
  3. METOPROLOL [Suspect]
     Active Substance: METOPROLOL
     Indication: Product used for unknown indication
     Dosage: UNK
     Route: 065
  4. LISINOPRIL [Concomitant]
     Active Substance: LISINOPRIL
     Indication: Product used for unknown indication
     Route: 065

REACTIONS (18)
  - Loss of consciousness [Unknown]
  - Tremor [Not Recovered/Not Resolved]
  - Gait inability [Unknown]
  - Head discomfort [Unknown]
  - Bundle branch block left [Unknown]
  - Dilatation atrial [Unknown]
  - Adverse drug reaction [Unknown]
  - Illness [Unknown]
  - Blood pressure decreased [Unknown]
  - Panic reaction [Unknown]
  - Anxiety [Not Recovered/Not Resolved]
  - Rhinorrhoea [Unknown]
  - Sinus disorder [Not Recovered/Not Resolved]
  - Abdominal discomfort [Unknown]
  - Dizziness [Unknown]
  - Ejection fraction decreased [Unknown]
  - Drug intolerance [Unknown]
  - Inappropriate schedule of product administration [Unknown]
